FAERS Safety Report 4532901-8 (Version None)
Quarter: 2004Q4

REPORT INFORMATION
  Report Type: 
  Country: None (occurrence: None)
  Receive Date: 20041210
  Receipt Date: 20041025
  Transmission Date: 20050328
  Serious: No
  Sender: FDA-Public Use
  Company Number: 2004-00707

PATIENT
  Age: 68 Year
  Sex: Female
  Weight: 81.6 kg

DRUGS (5)
  1. VELCADE [Suspect]
     Indication: MULTIPLE MYELOMA
     Dosage: 2.21 MG, IV BOLUS
     Route: 040
     Dates: start: 20040709, end: 20040730
  2. VELCADE [Suspect]
     Dosage: 1.70 MG, IV BOLUS
     Route: 040
     Dates: start: 20040730
  3. TOFRANIL [Concomitant]
  4. METHADONE HCL [Concomitant]
  5. DILAUDID [Concomitant]

REACTIONS (4)
  - ABDOMINAL DISTENSION [None]
  - BLADDER DISCOMFORT [None]
  - PARAESTHESIA [None]
  - PELVIC PAIN [None]
